FAERS Safety Report 10072830 (Version 1)
Quarter: 2014Q2

REPORT INFORMATION
  Report Type: Report from Study
  Country: US (occurrence: US)
  Receive Date: 20140411
  Receipt Date: 20140411
  Transmission Date: 20141212
  Serious: Yes (Hospitalization, Other)
  Sender: FDA-Public Use
  Company Number: US-MERCK-1404USA005161

PATIENT
  Age: 75 Year
  Sex: Female
  Weight: 67.12 kg

DRUGS (16)
  1. FOSAMAX [Suspect]
     Route: 048
  2. HUMIRA [Suspect]
     Indication: CROHN^S DISEASE
     Dosage: 40 MG, QOW
     Route: 058
     Dates: start: 2010
  3. HUMIRA [Suspect]
     Dosage: LOADING DOSE: 160 MG
     Route: 058
     Dates: start: 20120526, end: 20120526
  4. HUMIRA [Suspect]
     Dosage: 1 DF, QOW
     Route: 058
     Dates: start: 201212
  5. HUMIRA [Suspect]
     Dosage: UNK
     Route: 058
     Dates: start: 201301, end: 201306
  6. HUMIRA [Suspect]
     Dosage: UNK
     Route: 058
     Dates: start: 201306
  7. BONIVA [Suspect]
  8. HYDROCHLOROTHIAZIDE [Concomitant]
     Route: 048
  9. LISINOPRIL [Concomitant]
     Indication: HYPERTENSION
     Dosage: 20 MG, QD
  10. SYNTHROID [Concomitant]
     Indication: THYROID DISORDER
     Dosage: 75 MICROGRAM, QD
  11. ULTRAM [Concomitant]
     Indication: PAIN
     Dosage: 50 MG, PRN
  12. PRILOSEC [Concomitant]
     Dosage: TILL ^2 OR 3 WEEKS AGO^
     Route: 048
  13. XANAX [Concomitant]
     Dosage: 0.25 MG, HS
  14. CLONIDINE [Concomitant]
     Indication: HYPERTENSION
     Dosage: 0.2 MG, PRN
  15. AMLODIPINE [Concomitant]
     Indication: HYPERTENSION
     Dosage: 5 MG, QD
  16. TYLENOL [Concomitant]
     Indication: HEADACHE

REACTIONS (47)
  - Biliary tract disorder [Unknown]
  - Liver injury [Unknown]
  - Female genital tract fistula [Unknown]
  - Fistula discharge [Unknown]
  - Rotator cuff syndrome [Unknown]
  - Intestinal obstruction [Recovered/Resolved]
  - Cholecystectomy [Unknown]
  - Spinal fracture [Recovered/Resolved with Sequelae]
  - Cervical vertebral fracture [Recovered/Resolved with Sequelae]
  - Full blood count decreased [Unknown]
  - Deep vein thrombosis [Unknown]
  - Surgery [Unknown]
  - Hip fracture [Unknown]
  - Hip surgery [Unknown]
  - Female genital tract fistula [Unknown]
  - Feeling abnormal [Unknown]
  - Cholecystitis [Unknown]
  - Abasia [Unknown]
  - Malaise [Unknown]
  - Asthenia [Unknown]
  - Crohn^s disease [Unknown]
  - Procedural nausea [Unknown]
  - Diarrhoea [Unknown]
  - Arthralgia [Unknown]
  - Dehydration [Unknown]
  - Sinusitis [Unknown]
  - Headache [Unknown]
  - Nasal congestion [Unknown]
  - Paranasal sinus hypersecretion [Unknown]
  - Insomnia [Unknown]
  - Pain [Unknown]
  - Neck pain [Unknown]
  - Back pain [Unknown]
  - Joint dislocation [Unknown]
  - Musculoskeletal pain [Unknown]
  - Nausea [Unknown]
  - International normalised ratio decreased [Unknown]
  - Fatigue [Unknown]
  - Urinary tract infection [Unknown]
  - Injection site pain [Unknown]
  - Depressed mood [Unknown]
  - Medical device complication [Unknown]
  - Abdominal pain [Unknown]
  - Fall [Unknown]
  - Asthenia [Unknown]
  - Transfusion [Unknown]
  - Dysuria [Unknown]
